FAERS Safety Report 5164590-6 (Version None)
Quarter: 2006Q4

REPORT INFORMATION
  Report Type: 
  Country: None (occurrence: None)
  Receive Date: 20061205
  Receipt Date: 20061114
  Transmission Date: 20070319
  Serious: Yes (Hospitalization, Disabling)
  Sender: FDA-Public Use
  Company Number: JP-MERCK-0611USA05238

PATIENT
  Age: 56 Year
  Sex: Female
  Weight: 62 kg

DRUGS (42)
  1. PRIMAXIN [Suspect]
     Indication: BRAIN ABSCESS
     Route: 042
     Dates: start: 20061004, end: 20061123
  2. SEPAZON [Concomitant]
     Indication: SCHIZOPHRENIA
     Route: 048
     Dates: end: 20060901
  3. SEPAZON [Concomitant]
     Route: 048
     Dates: start: 20060927
  4. CALSLOT [Concomitant]
     Indication: HYPERTENSION
     Route: 048
     Dates: end: 20060901
  5. PRINIVIL [Concomitant]
     Indication: HYPERTENSION
     Route: 048
     Dates: end: 20060901
  6. VOLTAREN [Concomitant]
     Route: 048
     Dates: end: 20060901
  7. VOLTAREN [Concomitant]
     Indication: PYREXIA
     Route: 054
     Dates: start: 20060921, end: 20060921
  8. SELBEX [Concomitant]
     Route: 048
     Dates: end: 20060930
  9. PIPERACILLIN AND TAZOBACTAM [Concomitant]
     Indication: URINARY TRACT INFECTION
     Route: 042
     Dates: start: 20060921, end: 20060923
  10. PIPERACILLIN AND TAZOBACTAM [Concomitant]
     Route: 042
     Dates: start: 20060924, end: 20060928
  11. REMINARON [Concomitant]
     Indication: DISSEMINATED INTRAVASCULAR COAGULATION
     Route: 042
     Dates: start: 20060921, end: 20060927
  12. HUMULIN 70/30 [Concomitant]
     Indication: DIABETES MELLITUS
     Route: 058
     Dates: start: 20060921, end: 20061009
  13. DALACIN S [Concomitant]
     Indication: URINARY TRACT INFECTION
     Route: 042
     Dates: start: 20060922, end: 20060924
  14. LASIX [Concomitant]
     Indication: RENAL FAILURE
     Route: 042
     Dates: start: 20060922, end: 20060922
  15. LASIX [Concomitant]
     Route: 042
     Dates: start: 20060922, end: 20061001
  16. LASIX [Concomitant]
     Route: 042
     Dates: start: 20061002, end: 20061002
  17. LASIX [Concomitant]
     Route: 048
     Dates: start: 20061002, end: 20061007
  18. IMMUNE GLOBULIN INTRAVENOUS (HUMAN) [Concomitant]
     Indication: URINARY TRACT INFECTION
     Route: 042
     Dates: start: 20060922, end: 20060924
  19. NEUART [Concomitant]
     Indication: DISSEMINATED INTRAVASCULAR COAGULATION
     Route: 042
     Dates: start: 20060922, end: 20060924
  20. HUMULIN N [Concomitant]
     Indication: DIABETES MELLITUS
     Route: 058
     Dates: start: 20060922, end: 20060923
  21. GASTER [Concomitant]
     Indication: GASTRIC ULCER
     Route: 042
     Dates: start: 20060923
  22. HANP [Concomitant]
     Indication: CARDIAC FAILURE
     Route: 042
     Dates: start: 20060924, end: 20060927
  23. HANP [Concomitant]
     Route: 042
     Dates: start: 20060928, end: 20060928
  24. HANP [Concomitant]
     Route: 042
     Dates: start: 20060929, end: 20060929
  25. VANCOMYCIN [Concomitant]
     Indication: PSEUDOMEMBRANOUS COLITIS
     Route: 048
     Dates: start: 20060929, end: 20061003
  26. VANCOMYCIN [Concomitant]
     Route: 048
     Dates: start: 20061004, end: 20061010
  27. DOPAMINE HYDROCHLORIDE [Concomitant]
     Indication: RENAL FAILURE
     Route: 042
     Dates: start: 20060924, end: 20060930
  28. OMEPRAL [Concomitant]
     Indication: GASTRIC ULCER
     Route: 042
     Dates: start: 20060924, end: 20061010
  29. [THERAPY UNSPECIFIED] [Concomitant]
     Indication: SEDATION
     Route: 042
     Dates: start: 20060924, end: 20060926
  30. BIOFERMIN R [Concomitant]
     Indication: ENTEROCOLITIS
     Route: 048
     Dates: start: 20060925
  31. FLUITRAN [Concomitant]
     Indication: RENAL FAILURE
     Route: 048
     Dates: start: 20060925, end: 20061006
  32. PRECEDEX [Concomitant]
     Indication: SEDATION
     Route: 042
     Dates: start: 20060926, end: 20060928
  33. CEFAMEZIN [Concomitant]
     Indication: URINARY TRACT INFECTION
     Route: 042
     Dates: start: 20060929, end: 20061004
  34. BERIZYME (LYSOZYME CHLORIDE) [Concomitant]
     Indication: DYSPEPSIA
     Route: 048
     Dates: start: 20061002, end: 20061023
  35. CLAFORAN [Concomitant]
     Indication: URINARY TRACT INFECTION
     Route: 042
     Dates: start: 20061004, end: 20061004
  36. GLYCEOL [Concomitant]
     Indication: BRAIN OEDEMA
     Route: 042
     Dates: start: 20061004, end: 20061008
  37. ALBUMIN TANNATE [Concomitant]
     Indication: DIARRHOEA
     Route: 048
     Dates: start: 20061005, end: 20061012
  38. NOVOLIN R [Concomitant]
     Indication: DIABETES MELLITUS
     Route: 058
     Dates: start: 20061010
  39. NOVOLIN N [Concomitant]
     Indication: DIABETES MELLITUS
     Route: 058
     Dates: start: 20061010
  40. LANSOPRAZOLE [Concomitant]
     Indication: GASTRIC ULCER
     Route: 048
     Dates: start: 20061011
  41. NORVASC [Concomitant]
     Indication: HYPERTENSION
     Route: 048
     Dates: start: 20061013
  42. MICARDIS [Concomitant]
     Indication: HYPERTENSION
     Route: 048
     Dates: start: 20061029

REACTIONS (2)
  - CEREBRAL INFARCTION [None]
  - NEPHROGENIC DIABETES INSIPIDUS [None]
